FAERS Safety Report 8792589 (Version 7)
Quarter: 2012Q4

REPORT INFORMATION
  Report Type: 
  Country: US (occurrence: US)
  Receive Date: 20120918
  Receipt Date: 20121207
  Transmission Date: 20130627
  Serious: Yes (Hospitalization, Other)
  Sender: FDA-Public Use
  Company Number: US-VERTEX PHARMACEUTICAL INC.-2012-021121

PATIENT
  Age: 56 Year
  Sex: Male
  Weight: 91 kg

DRUGS (9)
  1. VX-950 (TELAPREVIR) [Suspect]
     Indication: HEPATITIS C
     Dosage: 750 mg, tid
     Route: 048
     Dates: start: 20120903, end: 20121115
  2. PEGASYS [Suspect]
     Indication: HEPATITIS C
     Dosage: 180 ?g, qw
     Route: 058
     Dates: start: 20120903
  3. RIBASPHERE [Suspect]
     Indication: HEPATITIS C
     Dosage: 600 mg, bid
     Route: 048
     Dates: start: 20120903
  4. RIBASPHERE [Suspect]
     Dosage: 300 mg, bid
     Route: 048
     Dates: start: 201211
  5. RIBASPHERE [Suspect]
     Dosage: dose reduced
     Route: 048
  6. ATENOLOL [Concomitant]
     Dosage: 50 mg, qd
     Route: 048
  7. BENAZEPRIL HCL [Concomitant]
     Dosage: 20 mg, qd
     Route: 048
  8. HYDROCHLOROTHIAZIDE [Concomitant]
     Dosage: 25 mg, qd
     Route: 048
  9. ASPIRIN [Concomitant]
     Dosage: UNK

REACTIONS (14)
  - Cardiac disorder [Unknown]
  - Hypotension [Unknown]
  - Affect lability [Unknown]
  - Anaemia [Unknown]
  - Dizziness [Not Recovered/Not Resolved]
  - Emotional disorder [Unknown]
  - Dyspnoea exertional [Not Recovered/Not Resolved]
  - Injection site rash [Not Recovered/Not Resolved]
  - Influenza like illness [Unknown]
  - Insomnia [Unknown]
  - Pain [Recovered/Resolved]
  - Fatigue [Unknown]
  - Rash pruritic [Not Recovered/Not Resolved]
  - Nausea [Recovered/Resolved]
